FAERS Safety Report 12334887 (Version 2)
Quarter: 2016Q3

REPORT INFORMATION
  Report Type: Report from Study
  Country: US (occurrence: US)
  Receive Date: 20160504
  Receipt Date: 20160701
  Transmission Date: 20161109
  Serious: Yes (Death, Other)
  Sender: FDA-Public Use
  Company Number: US-TAKEDA-2016MPI003641

PATIENT
  Age: 65 Year
  Sex: Male

DRUGS (10)
  1. ACYCLOVIR                          /00587301/ [Concomitant]
     Active Substance: ACYCLOVIR
     Dosage: UNK, QD
     Route: 048
  2. CENTRUM SILVER                     /02363801/ [Concomitant]
     Active Substance: MINERALS\VITAMINS
     Route: 048
  3. CLOTRIMAZOLE. [Concomitant]
     Active Substance: CLOTRIMAZOLE
     Dosage: 10 MG, UNK
     Route: 048
  4. ONDANSETRON HYDROCHLORIDE. [Concomitant]
     Active Substance: ONDANSETRON HYDROCHLORIDE
     Dosage: 8 MG, UNK
     Route: 048
  5. SENNA                              /00142201/ [Concomitant]
     Active Substance: SENNA LEAF
     Dosage: 8.6 MG, QD
     Route: 048
  6. VELCADE [Suspect]
     Active Substance: BORTEZOMIB
     Indication: PLASMA CELL MYELOMA
     Dosage: 1.92 MG, UNK
     Route: 058
     Dates: start: 20160102
  7. DILTIAZEM CD [Concomitant]
     Active Substance: DILTIAZEM
     Dosage: 240 MG, UNK
     Route: 048
  8. METHADONE HYDROCHLORIDE. [Concomitant]
     Active Substance: METHADONE HYDROCHLORIDE
     Dosage: 5 MG, TID
     Route: 048
  9. ACETAMINOPHEN W/HYDROCODONE [Concomitant]
     Active Substance: ACETAMINOPHEN\HYDROCODONE
     Dosage: UNK
     Route: 048
  10. DEXAMETHASONE. [Suspect]
     Active Substance: DEXAMETHASONE
     Indication: PLASMA CELL MYELOMA
     Dosage: 40 MG, 1/WEEK
     Route: 048

REACTIONS (1)
  - Plasma cell myeloma [Fatal]

NARRATIVE: CASE EVENT DATE: 20160430
